FAERS Safety Report 18203143 (Version 2)
Quarter: 2021Q1

REPORT INFORMATION
  Report Type: Spontaneous
  Country: IL (occurrence: IL)
  Receive Date: 20200827
  Receipt Date: 20210304
  Transmission Date: 20210419
  Serious: Yes (Hospitalization)
  Sender: FDA-Public Use
  Company Number: IL-SA-2020SA227918

PATIENT
  Age: 31 Year
  Sex: Female

DRUGS (8)
  1. HARMONET [Concomitant]
     Active Substance: ETHINYL ESTRADIOL\GESTODENE
     Indication: DISEASE COMPLICATION
     Dosage: UNK
  2. NEXIUM MUPS [ESOMEPRAZOLE MAGNESIUM] [Concomitant]
     Active Substance: ESOMEPRAZOLE MAGNESIUM
     Indication: DISEASE COMPLICATION
     Dosage: UNK
  3. DUPILUMAB [Suspect]
     Active Substance: DUPILUMAB
     Indication: ASTHMA
     Dosage: 600 MG, 1X
     Route: 058
     Dates: start: 20200817, end: 20200817
  4. FEXOFENADINE [Concomitant]
     Active Substance: FEXOFENADINE HYDROCHLORIDE
     Indication: HYPERSENSITIVITY
     Dosage: 2 DF, HS(TWO PILLS AT ONCE EVERY NIGHT)
  5. DUPILUMAB [Suspect]
     Active Substance: DUPILUMAB
     Dosage: 300 MG, QOW
     Route: 058
     Dates: start: 2020
  6. ADRENALIN (EPINEPHRINE) [Concomitant]
     Active Substance: EPINEPHRINE
     Indication: DISEASE COMPLICATION
     Dosage: UNK
  7. PREDNISONE. [Concomitant]
     Active Substance: PREDNISONE
     Indication: DISEASE COMPLICATION
     Dosage: 25 MG
  8. FOSTER [Concomitant]
     Active Substance: BECLOMETHASONE\FORMOTEROL
     Indication: DISEASE COMPLICATION
     Dosage: UNK

REACTIONS (9)
  - Diarrhoea [Recovering/Resolving]
  - Chapped lips [Unknown]
  - Injection site reaction [Unknown]
  - Cheilitis [Unknown]
  - Asthenia [Not Recovered/Not Resolved]
  - Drug ineffective [Unknown]
  - Abdominal pain [Unknown]
  - Leukocytosis [Unknown]
  - Myalgia [Not Recovered/Not Resolved]

NARRATIVE: CASE EVENT DATE: 202008
